FAERS Safety Report 12600440 (Version 1)
Quarter: 2016Q3

REPORT INFORMATION
  Report Type: Spontaneous
  Country: BE (occurrence: BE)
  Receive Date: 20160727
  Receipt Date: 20160727
  Transmission Date: 20161109
  Serious: Yes (Other)
  Sender: FDA-Public Use
  Company Number: BE-FRESENIUS KABI-FK201604847

PATIENT
  Age: 57 Year
  Sex: Male

DRUGS (9)
  1. CETUXIMAB [Suspect]
     Active Substance: CETUXIMAB
     Dates: start: 20160614
  2. FLUOROURACIL (MANUFACTURER UNKNOWN) [Suspect]
     Active Substance: FLUOROURACIL
     Route: 065
     Dates: start: 20160614
  3. CETUXIMAB [Suspect]
     Active Substance: CETUXIMAB
     Dates: start: 20160614
  4. FLUOROURACIL (MANUFACTURER UNKNOWN) [Suspect]
     Active Substance: FLUOROURACIL
     Indication: OROPHARYNGEAL CANCER
     Route: 065
     Dates: start: 20050509, end: 20050906
  5. CISPLATIN (MANUFACTURER UNKNOWN) [Suspect]
     Active Substance: CISPLATIN
     Indication: OROPHARYNGEAL CANCER
     Route: 065
     Dates: start: 20050509, end: 20050906
  6. CETUXIMAB [Suspect]
     Active Substance: CETUXIMAB
     Dates: start: 20050509, end: 20050906
  7. DOCETAXEL (MANUFACTURER UNKNOWN) [Suspect]
     Active Substance: DOCETAXEL
     Indication: OROPHARYNGEAL CANCER
     Route: 065
     Dates: start: 20160614
  8. CISPLATIN (MANUFACTURER UNKNOWN) [Suspect]
     Active Substance: CISPLATIN
     Route: 065
     Dates: start: 20160614
  9. CETUXIMAB [Suspect]
     Active Substance: CETUXIMAB
     Indication: OROPHARYNGEAL CANCER
     Dates: start: 20050509, end: 20050906

REACTIONS (12)
  - Dizziness [Unknown]
  - Fatigue [Unknown]
  - Hypotension [Unknown]
  - Nausea [Unknown]
  - Decreased appetite [Unknown]
  - Diarrhoea [Unknown]
  - Febrile neutropenia [Unknown]
  - Deafness [Unknown]
  - Peripheral sensory neuropathy [Unknown]
  - Infection [Unknown]
  - Rash [Unknown]
  - Alopecia [Unknown]
